FAERS Safety Report 5226376-3 (Version None)
Quarter: 2007Q1

REPORT INFORMATION
  Report Type: 
  Country: None (occurrence: None)
  Receive Date: 20061201
  Receipt Date: 20061024
  Transmission Date: 20070707
  Serious: No
  Sender: FDA-Public Use
  Company Number: US200610004434

PATIENT
  Age: 36 Year
  Sex: Female
  Weight: 88.4 kg

DRUGS (3)
  1. CYMBALTA [Suspect]
     Indication: DEPRESSION
     Dosage: 60 MG
     Dates: start: 20061001
  2. TOPAMAX /AUS/(TOPIRAMATE) [Concomitant]
  3. ZOLOFT [Concomitant]

REACTIONS (4)
  - DEPRESSED MOOD [None]
  - FEELING ABNORMAL [None]
  - IRRITABILITY [None]
  - MOOD ALTERED [None]
